FAERS Safety Report 5905320-7 (Version None)
Quarter: 2008Q4

REPORT INFORMATION
  Report Type: 
  Country: None (occurrence: None)
  Receive Date: 20081001
  Receipt Date: 20080922
  Transmission Date: 20090506
  Serious: Yes (Death, Hospitalization)
  Sender: FDA-Public Use
  Company Number: US-PFIZER INC-2008076645

PATIENT
  Sex: Male
  Weight: 79.6 kg

DRUGS (6)
  1. SUTENT [Suspect]
     Indication: RENAL CELL CARCINOMA
     Route: 048
     Dates: start: 20070809, end: 20071127
  2. VICODIN [Concomitant]
     Route: 048
     Dates: start: 20070707
  3. ALBUTEROL [Concomitant]
     Route: 050
     Dates: start: 20070826
  4. IPRATROPIUM BROMIDE [Concomitant]
     Route: 050
     Dates: start: 20070826
  5. AMLODIPINE [Concomitant]
     Dates: start: 20061025
  6. OMEPRAZOLE [Concomitant]
     Route: 048
     Dates: start: 20071003

REACTIONS (3)
  - CANCER PAIN [None]
  - DEATH [None]
  - PLEURAL EFFUSION [None]
